FAERS Safety Report 5086068-0 (Version None)
Quarter: 2006Q3

REPORT INFORMATION
  Report Type: 
  Country: None (occurrence: None)
  Receive Date: 20060818
  Receipt Date: 20060809
  Transmission Date: 20061208
  Serious: Yes (Other)
  Sender: FDA-Public Use
  Company Number: SPV1-2006-00390

PATIENT
  Age: 60 Year
  Sex: Female

DRUGS (5)
  1. AGRYLIN [Suspect]
     Indication: ESSENTIAL THROMBOCYTHAEMIA
     Dosage: ORAL
     Route: 048
     Dates: start: 20010801, end: 20020901
  2. AGRYLIN [Suspect]
     Indication: ESSENTIAL THROMBOCYTHAEMIA
     Dosage: ORAL
     Route: 048
     Dates: start: 20020901, end: 20030101
  3. AGRYLIN [Suspect]
     Indication: ESSENTIAL THROMBOCYTHAEMIA
     Dosage: ORAL
     Route: 048
     Dates: start: 20030101, end: 20050101
  4. HYDROXYUREA [Suspect]
     Indication: ESSENTIAL THROMBOCYTHAEMIA
  5. INTERFERON (INTERFERON) [Suspect]
     Indication: ESSENTIAL THROMBOCYTHAEMIA
     Dates: start: 20030101, end: 20030101

REACTIONS (4)
  - ACUTE LEUKAEMIA [None]
  - ADVERSE DRUG REACTION [None]
  - ANAEMIA [None]
  - DRUG INTOLERANCE [None]
